FAERS Safety Report 9966397 (Version 2)
Quarter: 2014Q1

REPORT INFORMATION
  Report Type: Report from Study
  Country: US (occurrence: US)
  Receive Date: 20140305
  Receipt Date: 20140305
  Transmission Date: 20141002
  Serious: No
  Sender: FDA-Public Use
  Company Number: US-ABBVIE-13P-163-1090707-00

PATIENT
  Age: 60 Year
  Sex: Female

DRUGS (13)
  1. HUMIRA [Suspect]
     Indication: CROHN^S DISEASE
     Route: 058
     Dates: start: 201304, end: 201304
  2. HUMIRA [Suspect]
     Route: 058
     Dates: start: 20130507, end: 20130507
  3. HUMIRA [Suspect]
     Route: 058
     Dates: start: 20130521, end: 20130521
  4. HUMIRA [Suspect]
     Route: 058
     Dates: end: 20130730
  5. DIOVAN [Concomitant]
     Indication: HYPERTENSION
     Dosage: 80 MG DAILY
  6. PREDNISONE [Concomitant]
     Indication: CROHN^S DISEASE
     Dosage: 5 MG DAILY
  7. PRILOSEC [Concomitant]
     Indication: GASTROOESOPHAGEAL REFLUX DISEASE
     Dosage: 20 MG DAILY
  8. MULTIVITAMIN [Concomitant]
     Indication: VITAMIN SUPPLEMENTATION
  9. VITAMIN D [Concomitant]
     Indication: VITAMIN SUPPLEMENTATION
  10. ENTOCORT EC [Concomitant]
     Indication: PRODUCT USED FOR UNKNOWN INDICATION
  11. PENTASA [Concomitant]
     Indication: PRODUCT USED FOR UNKNOWN INDICATION
  12. ALIGN [Concomitant]
     Indication: PRODUCT USED FOR UNKNOWN INDICATION
  13. KEFLEX [Concomitant]
     Indication: PRODUCT USED FOR UNKNOWN INDICATION

REACTIONS (8)
  - Incorrect product storage [Not Recovered/Not Resolved]
  - Furuncle [Unknown]
  - Chest pain [Not Recovered/Not Resolved]
  - Dyspnoea exertional [Not Recovered/Not Resolved]
  - Injection site pain [Unknown]
  - Frequent bowel movements [Not Recovered/Not Resolved]
  - Rash [Unknown]
  - Infection [Unknown]
